FAERS Safety Report 4325856-2 (Version None)
Quarter: 2004Q1

REPORT INFORMATION
  Report Type: 
  Country: None (occurrence: None)
  Receive Date: 20040323
  Receipt Date: 20040312
  Transmission Date: 20041129
  Serious: Yes (Death)
  Sender: FDA-Public Use
  Company Number: US-JNJFOC-20040303196

PATIENT
  Age: 81 Year
  Sex: Female

DRUGS (9)
  1. INFLIXIMAB (INFLIXIMAB, RECOMBINANT) LYOPHILIZED POWDER [Suspect]
     Indication: RHEUMATOID ARTHRITIS
     Dosage: INTRAVENOUS
     Route: 042
     Dates: start: 20010125, end: 20021003
  2. LEVOTHYROXINE SODIUM [Concomitant]
  3. FOLIC ACID [Concomitant]
  4. DILTIAZEM CD (DILTIAZEM HYDROCHLORIDE) [Concomitant]
  5. ZESTRIL [Concomitant]
  6. IMURAN [Concomitant]
  7. ASPIRIN [Concomitant]
  8. LASIX [Concomitant]
  9. VITAMIN B12 [Concomitant]

REACTIONS (1)
  - DEATH [None]
